FAERS Safety Report 6944860-9 (Version None)
Quarter: 2010Q3

REPORT INFORMATION
  Report Type: 
  Country: None (occurrence: None)
  Receive Date: 20100827
  Receipt Date: 20100816
  Transmission Date: 20110219
  Serious: Yes (Death, Hospitalization)
  Sender: FDA-Public Use
  Company Number: FR-BAYER-201025048GPV

PATIENT
  Age: 62 Year
  Sex: Male

DRUGS (7)
  1. NEXAVAR [Suspect]
     Indication: HEPATIC NEOPLASM MALIGNANT
     Route: 048
     Dates: start: 20091010, end: 20091106
  2. NEXAVAR [Suspect]
     Route: 048
     Dates: start: 20091107, end: 20091114
  3. COLCHIMAX [Concomitant]
     Indication: PRODUCT USED FOR UNKNOWN INDICATION
     Dates: start: 20091130, end: 20091222
  4. STILNOX [Concomitant]
     Dates: start: 20091130, end: 20091215
  5. SPECIAFOLDINE [Concomitant]
     Dates: start: 20091130, end: 20091228
  6. TRIATEC [Concomitant]
     Dates: start: 20091130, end: 20091215
  7. ZYLORIC [Concomitant]
     Dates: start: 20091207, end: 20091228

REACTIONS (5)
  - ASCITES [None]
  - FALL [None]
  - GENERAL PHYSICAL HEALTH DETERIORATION [None]
  - JAUNDICE [None]
  - SYNCOPE [None]
